FAERS Safety Report 5758945-6 (Version None)
Quarter: 2008Q2

REPORT INFORMATION
  Report Type: 
  Country: None (occurrence: None)
  Receive Date: 20080604
  Receipt Date: 20080529
  Transmission Date: 20081010
  Serious: Yes (Hospitalization)
  Sender: FDA-Public Use
  Company Number: CN-WYE-H04295808

PATIENT
  Age: 64 Year
  Sex: Female

DRUGS (1)
  1. TAZOCIN [Suspect]
     Indication: LOBAR PNEUMONIA
     Route: 042
     Dates: start: 20080110, end: 20080112

REACTIONS (1)
  - DERMATITIS EXFOLIATIVE [None]
